FAERS Safety Report 7672550-6 (Version None)
Quarter: 2011Q3

REPORT INFORMATION
  Report Type: 
  Country: None (occurrence: None)
  Receive Date: 20110809
  Receipt Date: 20110805
  Transmission Date: 20111222
  Serious: Yes (Other)
  Sender: FDA-Public Use
  Company Number: US-SANOFI-AVENTIS-2011SA044106

PATIENT
  Age: 78 Year
  Sex: Male
  Weight: 78.02 kg

DRUGS (4)
  1. ZANTAC [Concomitant]
     Dates: start: 20110211
  2. PLAVIX [Suspect]
     Indication: CORONARY ARTERY DISEASE
     Route: 048
     Dates: start: 20090101
  3. IMDUR [Concomitant]
     Indication: CORONARY ARTERY DISEASE
     Dates: start: 20101015
  4. TENORMIN [Concomitant]
     Indication: HYPERTENSION
     Dates: start: 20110208

REACTIONS (2)
  - URTICARIA [None]
  - CORONARY ARTERY OCCLUSION [None]
